FAERS Safety Report 4444869-3 (Version None)
Quarter: 2004Q3

REPORT INFORMATION
  Report Type: 
  Country: None (occurrence: None)
  Receive Date: 20040909
  Receipt Date: 20040721
  Transmission Date: 20050211
  Serious: Yes (Hospitalization)
  Sender: FDA-Public Use
  Company Number: US-GLAXOSMITHKLINE-A0519239A

PATIENT
  Sex: Female

DRUGS (6)
  1. ZOFRAN [Suspect]
     Dosage: 10MG PER DAY
     Route: 030
     Dates: start: 20040709
  2. ZOFRAN [Suspect]
     Dosage: 4MG TWICE PER DAY
     Route: 048
     Dates: start: 20040607
  3. PROZAC [Concomitant]
  4. AMBIEN [Concomitant]
  5. PHENERGAN HCL [Concomitant]
  6. TIGAN [Concomitant]

REACTIONS (7)
  - ANXIETY [None]
  - BLOOD PRESSURE DECREASED [None]
  - CATATONIA [None]
  - DRUG EXPOSURE DURING PREGNANCY [None]
  - FORMICATION [None]
  - INSOMNIA [None]
  - SYNCOPE VASOVAGAL [None]
